FAERS Safety Report 7005276-2 (Version None)
Quarter: 2010Q3

REPORT INFORMATION
  Report Type: 
  Country: None (occurrence: None)
  Receive Date: 20100920
  Receipt Date: 20100920
  Transmission Date: 20110219
  Serious: Yes (Life-Threatening)
  Sender: FDA-Public Use
  Company Number: None

PATIENT

DRUGS (1)
  1. QUINAPRIL [Suspect]

REACTIONS (2)
  - ANGIOEDEMA [None]
  - DYSPNOEA [None]
